FAERS Safety Report 22138459 (Version 1)
Quarter: 2023Q1

REPORT INFORMATION
  Report Type: Spontaneous
  Country: PL (occurrence: PL)
  Receive Date: 20230326
  Receipt Date: 20230326
  Transmission Date: 20230417
  Serious: Yes (Other)
  Sender: FDA-Public Use
  Company Number: PL-POLFAT-27-2023

PATIENT
  Age: 67 Year
  Sex: Male

DRUGS (1)
  1. LEVETIRACETAM [Suspect]
     Active Substance: LEVETIRACETAM
     Indication: Epilepsy
     Dosage: THE DOSAGE OF THE DRUG DESCRIBED IN THE ARTICLE IS ^100 MG TWICE A DAY^ACCORDING TO MAH, THE DOSE IS

REACTIONS (2)
  - Thrombocytopenia [Not Recovered/Not Resolved]
  - Gamma-glutamyltransferase increased [Unknown]
